FAERS Safety Report 12132921 (Version 1)
Quarter: 2016Q1

REPORT INFORMATION
  Report Type: Spontaneous
  Country: US (occurrence: US)
  Receive Date: 20160301
  Receipt Date: 20160301
  Transmission Date: 20160526
  Serious: No
  Sender: FDA-Public Use
  Company Number: US-JNJFOC-20160112804

PATIENT
  Age: 68 Year
  Sex: Female
  Weight: 76.66 kg

DRUGS (4)
  1. IMODIUM A-D [Suspect]
     Active Substance: LOPERAMIDE HYDROCHLORIDE
     Indication: DIARRHOEA
     Route: 048
     Dates: start: 20160110, end: 20160202
  2. ASPIRIN. [Concomitant]
     Active Substance: ASPIRIN
     Dosage: FOR YEARS
     Route: 065
  3. IMODIUM A-D [Suspect]
     Active Substance: LOPERAMIDE HYDROCHLORIDE
     Indication: DIARRHOEA
     Route: 048
     Dates: start: 20160202
  4. ZYRTEC [Concomitant]
     Active Substance: CETIRIZINE HYDROCHLORIDE
     Indication: SINUS CONGESTION
     Dosage: FOR YEARS
     Route: 065

REACTIONS (2)
  - Intentional product use issue [Unknown]
  - Inappropriate schedule of drug administration [Unknown]
